APPROVED DRUG PRODUCT: TRAZODONE HYDROCHLORIDE
Active Ingredient: TRAZODONE HYDROCHLORIDE
Strength: 100MG
Dosage Form/Route: TABLET;ORAL
Application: A218988 | Product #002 | TE Code: AB
Applicant: GRANULES INDIA LTD
Approved: Aug 8, 2024 | RLD: No | RS: No | Type: RX